FAERS Safety Report 17989932 (Version 2)
Quarter: 2020Q3

REPORT INFORMATION
  Report Type: Spontaneous
  Country: BR (occurrence: BR)
  Receive Date: 20200707
  Receipt Date: 20200803
  Transmission Date: 20201103
  Serious: Yes (Hospitalization, Other)
  Sender: FDA-Public Use
  Company Number: BR-GLAXOSMITHKLINE-BR2020AMR117997

PATIENT
  Age: 86 Year
  Sex: Male

DRUGS (3)
  1. AEROLIN [Suspect]
     Active Substance: ALBUTEROL
     Indication: ASTHMA
     Dosage: UNK UNK, QD
  2. ALENIA (BUDESONIDA + FORMOTEROL) [Concomitant]
     Indication: PRODUCT USED FOR UNKNOWN INDICATION
     Dosage: UNK
  3. AEROLIN [Suspect]
     Active Substance: ALBUTEROL
     Dosage: UNK UNK, BID

REACTIONS (5)
  - Pneumonia [Unknown]
  - Social problem [Unknown]
  - Dyspnoea [Unknown]
  - Product complaint [Unknown]
  - Product use issue [Unknown]
